FAERS Safety Report 14605035 (Version 1)
Quarter: 2018Q1

REPORT INFORMATION
  Report Type: Spontaneous
  Country: RU (occurrence: RU)
  Receive Date: 20180306
  Receipt Date: 20180306
  Transmission Date: 20180509
  Serious: Yes (Life-Threatening)
  Sender: FDA-Public Use
  Company Number: RU-AKRON, INC.-2043076

PATIENT
  Age: 71 Year
  Sex: Male

DRUGS (1)
  1. ZIOPTAN [Suspect]
     Active Substance: TAFLUPROST
     Indication: OPEN ANGLE GLAUCOMA
     Route: 047

REACTIONS (1)
  - Asphyxia [Recovered/Resolved]
